FAERS Safety Report 7133185-7 (Version None)
Quarter: 2010Q4

REPORT INFORMATION
  Report Type: 
  Country: None (occurrence: None)
  Receive Date: 20101117
  Receipt Date: 20101101
  Transmission Date: 20110411
  Serious: Yes (Hospitalization)
  Sender: FDA-Public Use
  Company Number: 021494

PATIENT
  Sex: Male
  Weight: 46 kg

DRUGS (6)
  1. CIMZIA [Suspect]
     Indication: CROHN'S DISEASE
     Dosage: 400 MG, 1X/2 WEEKS; SUBCUTANEOUS
     Route: 058
     Dates: start: 20100122
  2. IBUPROFEN [Concomitant]
  3. PREDNISONE [Concomitant]
  4. HEPARIN [Concomitant]
  5. PEPCID [Concomitant]
  6. FLAGYL [Concomitant]

REACTIONS (8)
  - ABDOMINAL ABSCESS [None]
  - ASCITES [None]
  - ATELECTASIS [None]
  - FISTULA REPAIR [None]
  - ILEOCOLECTOMY [None]
  - ILEOSTOMY [None]
  - LUNG CONSOLIDATION [None]
  - PLEURAL EFFUSION [None]
